FAERS Safety Report 9702641 (Version 1)
Quarter: 2013Q4

REPORT INFORMATION
  Report Type: Other
  Country: US (occurrence: US)
  Receive Date: 20131121
  Receipt Date: 20131121
  Transmission Date: 20140711
  Serious: Yes (Death)
  Sender: FDA-Public Use
  Company Number: US-FRI-1000051503

PATIENT
  Age: 68 Year
  Sex: Female

DRUGS (4)
  1. CEFTAROLINE FOSAMIL [Suspect]
     Indication: STAPHYLOCOCCAL INFECTION
     Dosage: 1800 MG DAILY
  2. CEFTAROLINE FOSAMIL [Suspect]
     Indication: INTERVERTEBRAL DISCITIS
  3. CEFTAROLINE FOSAMIL [Suspect]
     Indication: OSTEOMYELITIS
  4. CEFTAROLINE FOSAMIL [Suspect]
     Indication: EXTRADURAL ABSCESS

REACTIONS (1)
  - Death [Fatal]
